FAERS Safety Report 4765777-4 (Version None)
Quarter: 2005Q3

REPORT INFORMATION
  Report Type: 
  Country: None (occurrence: None)
  Receive Date: 20050906
  Receipt Date: 20050826
  Transmission Date: 20060218
  Serious: Yes (Hospitalization)
  Sender: FDA-Public Use
  Company Number: 2005FR-00264

PATIENT
  Age: 82 Year
  Sex: Male

DRUGS (5)
  1. ETODOLAC [Suspect]
     Indication: RHEUMATOID ARTHRITIS
     Dosage: 600MG, ORAL
     Route: 048
     Dates: start: 20050101
  2. LANSOPRAZOLE [Concomitant]
  3. FELODIPINE [Concomitant]
  4. ALLOPURINOL [Concomitant]
  5. METHOTREXATE [Concomitant]

REACTIONS (1)
  - MYOCARDIAL INFARCTION [None]
